FAERS Safety Report 19901547 (Version 1)
Quarter: 2021Q3

REPORT INFORMATION
  Report Type: Spontaneous
  Country: US (occurrence: US)
  Receive Date: 20210930
  Receipt Date: 20210930
  Transmission Date: 20211014
  Serious: Yes (Other)
  Sender: FDA-Public Use
  Company Number: None

PATIENT
  Age: 63 Year
  Sex: Male
  Weight: 60.75 kg

DRUGS (1)
  1. CLINDAMYCIN HCL [Suspect]
     Active Substance: CLINDAMYCIN HYDROCHLORIDE
     Indication: TOOTH ABSCESS
     Dosage: ?          QUANTITY:22 CAPSULE(S);?
     Route: 048
     Dates: start: 20210916, end: 20210917

REACTIONS (8)
  - Abdominal pain [None]
  - Acne [None]
  - Dysuria [None]
  - Chromaturia [None]
  - Diarrhoea [None]
  - Heart rate increased [None]
  - Pyrexia [None]
  - Chest pain [None]

NARRATIVE: CASE EVENT DATE: 20210917
